FAERS Safety Report 7491730-6 (Version None)
Quarter: 2011Q2

REPORT INFORMATION
  Report Type: 
  Country: None (occurrence: None)
  Receive Date: 20110519
  Receipt Date: 20110510
  Transmission Date: 20111010
  Serious: Yes (Hospitalization, Disabling, Other)
  Sender: FDA-Public Use
  Company Number: US-ASTRAZENECA-2011SE07905

PATIENT
  Sex: Male

DRUGS (5)
  1. COUMADIN [Concomitant]
  2. NEXIUM [Concomitant]
  3. SEROQUEL [Concomitant]
  4. CRESTOR [Suspect]
     Route: 048
  5. TOPROL-XL [Suspect]
     Route: 048

REACTIONS (6)
  - PARALYSIS [None]
  - PARKINSON'S DISEASE [None]
  - HALLUCINATION [None]
  - COLON OPERATION [None]
  - MUSCLE SPASMS [None]
  - COLONOSCOPY [None]
